FAERS Safety Report 4542401-7 (Version None)
Quarter: 2004Q4

REPORT INFORMATION
  Report Type: 
  Country: None (occurrence: None)
  Receive Date: 20041230
  Receipt Date: 20041222
  Transmission Date: 20050328
  Serious: Yes (Life-Threatening, Other)
  Sender: FDA-Public Use
  Company Number: FR-ABBOTT-04P-056-0284716-00

PATIENT
  Sex: Male
  Weight: 2.8 kg

DRUGS (6)
  1. FERO GRAD [Suspect]
     Indication: DRUG EXPOSURE DURING PREGNANCY
  2. IODINE [Suspect]
     Indication: DRUG EXPOSURE DURING PREGNANCY
  3. MAGNESIUM PIDOLATE [Suspect]
     Indication: DRUG EXPOSURE DURING PREGNANCY
  4. L-THYROXINE [Suspect]
     Indication: DRUG EXPOSURE DURING PREGNANCY
  5. TRAMADOL HCL [Suspect]
     Indication: DRUG EXPOSURE DURING PREGNANCY
  6. ACETYLSALICYLIC ACID SRT [Suspect]
     Indication: DRUG EXPOSURE DURING PREGNANCY

REACTIONS (3)
  - CONGENITAL VENTRICULAR SEPTAL DEFECT [None]
  - DRUG EXPOSURE DURING PREGNANCY [None]
  - FOETAL CARDIAC DISORDER [None]
